FAERS Safety Report 8015893-9 (Version None)
Quarter: 2011Q4

REPORT INFORMATION
  Report Type: 
  Country: None (occurrence: None)
  Receive Date: 20111230
  Receipt Date: 20111222
  Transmission Date: 20120403
  Serious: Yes (Life-Threatening)
  Sender: FDA-Public Use
  Company Number: SI-PFIZER INC-2008055824

PATIENT
  Age: 70 Year
  Sex: Male
  Weight: 78 kg

DRUGS (9)
  1. ALLOPURINOL [Concomitant]
     Route: 048
     Dates: start: 20070405, end: 20080527
  2. FUROSEMIDE [Concomitant]
     Route: 048
     Dates: start: 20080323
  3. CALCIUM CARBONATE [Concomitant]
     Route: 048
     Dates: start: 20080523, end: 20080527
  4. AMLODIPINE [Concomitant]
     Route: 048
     Dates: end: 20080601
  5. SUNITINIB MALATE [Suspect]
     Indication: METASTATIC RENAL CELL CARCINOMA
     Dosage: 50 MG, 1X/DAY
     Dates: start: 20060421, end: 20080531
  6. FERRUM ORAL ^LEK^ [Concomitant]
     Route: 048
     Dates: start: 20080327, end: 20080601
  7. LEVOTHYROXINE SODIUM [Concomitant]
     Route: 048
     Dates: start: 20080116
  8. EPOETIN BETA [Concomitant]
     Route: 058
     Dates: start: 20080523, end: 20080527
  9. DOXAZOSIN MESYLATE [Concomitant]
     Route: 048
     Dates: start: 20071222, end: 20080601

REACTIONS (1)
  - CAPILLARY LEAK SYNDROME [None]
